FAERS Safety Report 4496872-5 (Version None)
Quarter: 2004Q4

REPORT INFORMATION
  Report Type: 
  Country: None (occurrence: None)
  Receive Date: 20041109
  Receipt Date: 20041029
  Transmission Date: 20050328
  Serious: Yes (Hospitalization)
  Sender: FDA-Public Use
  Company Number: US-BRISTOL-MYERS SQUIBB COMPANY-12751236

PATIENT
  Age: 66 Year
  Sex: Male
  Weight: 66 kg

DRUGS (6)
  1. CISPLATIN [Suspect]
     Indication: NEOPLASM MALIGNANT
     Route: 042
     Dates: start: 20000427, end: 20000427
  2. CETUXIMAB [Suspect]
     Indication: NEOPLASM MALIGNANT
     Dosage: LOADING DOSE 29-DEC-99 AT 400 MG/M^2
     Route: 042
     Dates: start: 20000427, end: 20000427
  3. SYNTHROID [Concomitant]
  4. LORTAB [Concomitant]
  5. ERYTHROMYCIN [Concomitant]
  6. TETRACYCLINE [Concomitant]

REACTIONS (1)
  - WEIGHT DECREASED [None]
